FAERS Safety Report 16160190 (Version 1)
Quarter: 2019Q2

REPORT INFORMATION
  Report Type: Spontaneous
  Country: ES (occurrence: ES)
  Receive Date: 20190404
  Receipt Date: 20190404
  Transmission Date: 20190711
  Serious: Yes (Other)
  Sender: FDA-Public Use
  Company Number: ES-ELI_LILLY_AND_COMPANY-ES201903013901

PATIENT
  Age: 39 Year
  Sex: Female
  Weight: 50 kg

DRUGS (1)
  1. BARICITINIB [Suspect]
     Active Substance: BARICITINIB
     Indication: SYSTEMIC LUPUS ERYTHEMATOSUS
     Dosage: 4 MG, UNKNOWN
     Route: 048
     Dates: start: 20181116, end: 20190118

REACTIONS (3)
  - Cutaneous vasculitis [Recovering/Resolving]
  - Off label use [Recovered/Resolved]
  - Chillblains [Recovering/Resolving]

NARRATIVE: CASE EVENT DATE: 20181221
